FAERS Safety Report 13076748 (Version 2)
Quarter: 2017Q1

REPORT INFORMATION
  Report Type: Spontaneous
  Country: US (occurrence: US)
  Receive Date: 20161230
  Receipt Date: 20170109
  Transmission Date: 20170428
  Serious: Yes (Death, Other)
  Sender: FDA-Public Use
  Company Number: US-CELGENEUS-USA-2016128007

PATIENT
  Age: 82 Year
  Sex: Female

DRUGS (1)
  1. REVLIMID [Suspect]
     Active Substance: LENALIDOMIDE
     Indication: PLASMA CELL MYELOMA
     Dosage: 15 MILLIGRAM
     Route: 048
     Dates: start: 201610

REACTIONS (7)
  - Dementia [Unknown]
  - Wrist fracture [Unknown]
  - Cerebrovascular accident [Unknown]
  - Renal failure [Fatal]
  - Cardiac failure [Fatal]
  - Chronic obstructive pulmonary disease [Unknown]
  - Fall [Unknown]

NARRATIVE: CASE EVENT DATE: 2016
